FAERS Safety Report 14626042 (Version 3)
Quarter: 2018Q2

REPORT INFORMATION
  Report Type: Spontaneous
  Country: US (occurrence: US)
  Receive Date: 20180312
  Receipt Date: 20180426
  Transmission Date: 20180711
  Serious: Yes (Hospitalization)
  Sender: FDA-Public Use
  Company Number: US-JNJFOC-20180311969

PATIENT
  Age: 94 Year
  Sex: Male

DRUGS (1)
  1. ZYTIGA [Suspect]
     Active Substance: ABIRATERONE ACETATE
     Indication: PROSTATE CANCER
     Route: 048
     Dates: start: 201709

REACTIONS (3)
  - Food poisoning [Not Recovered/Not Resolved]
  - Neoplasm malignant [Recovering/Resolving]
  - Prostatic specific antigen increased [Recovered/Resolved]

NARRATIVE: CASE EVENT DATE: 20170915
